FAERS Safety Report 14375704 (Version 11)
Quarter: 2018Q3

REPORT INFORMATION
  Report Type: Spontaneous
  Country: FR (occurrence: FR)
  Receive Date: 20180111
  Receipt Date: 20180827
  Transmission Date: 20181010
  Serious: Yes (Other)
  Sender: FDA-Public Use
  Company Number: FR-PFIZER INC-2018007310

PATIENT
  Age: 11 Year
  Sex: Male

DRUGS (6)
  1. ETOPOSIDE. [Suspect]
     Active Substance: ETOPOSIDE
     Indication: EWING^S SARCOMA
     Dosage: 2.5 G/M2, CYCLIC (FIVE COURSES)
  2. CYCLOPHOSPHAMIDE. [Suspect]
     Active Substance: CYCLOPHOSPHAMIDE
     Indication: EWING^S SARCOMA
     Dosage: 6.2 G/M2, CYCLIC (FIVE COURSES)
  3. IFOSFAMIDE. [Suspect]
     Active Substance: IFOSFAMIDE
     Indication: EWING^S SARCOMA
     Dosage: 59 G/M2, CYCLIC (FIVE COURSES)
  4. VINCRISTINE SULFATE. [Suspect]
     Active Substance: VINCRISTINE SULFATE
     Indication: EWING^S SARCOMA
     Dosage: 17.7 MG/M2, CYCLIC (FIVE COURSES)
  5. DOXORUBICIN HCL [Suspect]
     Active Substance: DOXORUBICIN HYDROCHLORIDE
     Indication: EWING^S SARCOMA
     Dosage: 350 MG/M2, CYCLIC (FIVE COURSES)
  6. ACTINOMYCIN D [Suspect]
     Active Substance: DACTINOMYCIN
     Indication: EWING^S SARCOMA
     Dosage: 5.2 MG/M2, CYCLIC (FIVE COURSES)

REACTIONS (1)
  - Haematotoxicity [Recovered/Resolved]
